FAERS Safety Report 5707015-1 (Version None)
Quarter: 2008Q2

REPORT INFORMATION
  Report Type: 
  Country: None (occurrence: None)
  Receive Date: 20080416
  Receipt Date: 20080401
  Transmission Date: 20081010
  Serious: Yes (Congenital Anomaly, Other)
  Sender: FDA-Public Use
  Company Number: A0695677A

PATIENT
  Sex: Female
  Weight: 4.1 kg

DRUGS (2)
  1. PAXIL [Suspect]
     Indication: DEPRESSION
     Dosage: 20MG PER DAY
     Dates: start: 19970201, end: 20010701
  2. VITAMIN TAB [Concomitant]

REACTIONS (6)
  - ARNOLD-CHIARI MALFORMATION [None]
  - CONGENITAL CORONARY ARTERY MALFORMATION [None]
  - DRUG EXPOSURE DURING PREGNANCY [None]
  - EPILEPSY [None]
  - HYDROCEPHALUS [None]
  - TRANSPOSITION OF THE GREAT VESSELS [None]
